FAERS Safety Report 9035386 (Version 1)
Quarter: 2013Q1

REPORT INFORMATION
  Report Type: Report from Study
  Country: US (occurrence: US)
  Receive Date: 20130129
  Receipt Date: 20130129
  Transmission Date: 20140127
  Serious: No
  Sender: FDA-Public Use
  Company Number: US-ABBOTT-12P-163-0894845-00

PATIENT
  Age: 66 None
  Sex: Female
  Weight: 79.45 kg

DRUGS (9)
  1. HUMIRA 40 MG/ 0.8 ML PRE-FILLED SYRINGE [Suspect]
     Indication: CROHN^S DISEASE
     Dates: start: 200904, end: 201111
  2. HUMIRA 40 MG/ 0.8 ML PRE-FILLED SYRINGE [Suspect]
     Dates: start: 201201
  3. VICODIN [Concomitant]
     Indication: PAIN
  4. ATENOLOL [Concomitant]
     Indication: HYPERTENSION
  5. PRIMIDONE [Concomitant]
     Indication: JAW DISORDER
  6. PROMETHAZINE [Concomitant]
     Indication: NAUSEA
  7. IRON [Concomitant]
     Indication: MINERAL SUPPLEMENTATION
  8. MULTIVITAMINS [Concomitant]
     Indication: VITAMIN SUPPLEMENTATION
  9. CALCIUM [Concomitant]
     Indication: MINERAL SUPPLEMENTATION

REACTIONS (15)
  - Rash [Not Recovered/Not Resolved]
  - Mental impairment [Recovered/Resolved]
  - Asthenia [Recovered/Resolved]
  - Diarrhoea [Not Recovered/Not Resolved]
  - Stomatitis [Recovered/Resolved]
  - Oral fungal infection [Recovered/Resolved]
  - Dysphagia [Recovered/Resolved]
  - Rash pruritic [Not Recovered/Not Resolved]
  - Rash erythematous [Not Recovered/Not Resolved]
  - Vitamin D decreased [Unknown]
  - Copper deficiency [Unknown]
  - Weight decreased [Not Recovered/Not Resolved]
  - Skin burning sensation [Not Recovered/Not Resolved]
  - Fungal skin infection [Unknown]
  - Drug ineffective [Unknown]
